FAERS Safety Report 23836374 (Version 1)
Quarter: 2024Q2

REPORT INFORMATION
  Report Type: Spontaneous
  Country: TN (occurrence: TN)
  Receive Date: 20240509
  Receipt Date: 20240509
  Transmission Date: 20240717
  Serious: Yes (Other)
  Sender: FDA-Public Use
  Company Number: TN-PFIZER INC-PV202400059366

PATIENT
  Age: 72 Year

DRUGS (1)
  1. SUTENT [Suspect]
     Active Substance: SUNITINIB MALATE
     Dosage: UNK
     Dates: start: 202310

REACTIONS (2)
  - Adrenal insufficiency [Unknown]
  - Hypertension [Unknown]

NARRATIVE: CASE EVENT DATE: 20240301
